FAERS Safety Report 4944736-2 (Version None)
Quarter: 2006Q1

REPORT INFORMATION
  Report Type: 
  Country: None (occurrence: None)
  Receive Date: 20060113
  Receipt Date: 20050105
  Transmission Date: 20060701
  Serious: Yes (Disabling, Other)
  Sender: FDA-Public Use
  Company Number: HQWYE397123JUL04

PATIENT
  Age: 54 Year
  Sex: Female
  Weight: 65.83 kg

DRUGS (5)
  1. PREMPRO [Suspect]
     Indication: MENOPAUSAL SYMPTOMS
     Dosage: ORAL
     Route: 048
     Dates: start: 19980101
  2. ESTRATEST [Suspect]
     Indication: MENOPAUSAL SYMPTOMS
     Dates: start: 19950201
  3. ORTHO-EST [Suspect]
     Indication: MENOPAUSAL SYMPTOMS
     Dates: start: 19930901, end: 19950201
  4. PREMARIN [Suspect]
     Indication: MENOPAUSAL SYMPTOMS
     Dosage: ORAL
     Route: 048
     Dates: start: 19950201, end: 19980101
  5. PROVERA [Suspect]
     Indication: MENOPAUSAL SYMPTOMS
     Dosage: ORAL
     Dates: start: 19930901, end: 19950201

REACTIONS (1)
  - BREAST CANCER [None]
